FAERS Safety Report 4519528-9 (Version None)
Quarter: 2004Q4

REPORT INFORMATION
  Report Type: 
  Country: None (occurrence: None)
  Receive Date: 20041202
  Receipt Date: 20041122
  Transmission Date: 20050328
  Serious: Yes (Death)
  Sender: FDA-Public Use
  Company Number: 430001M04IRL

PATIENT

DRUGS (1)
  1. NOVANTRONE [Suspect]

REACTIONS (1)
  - SUDDEN DEATH [None]
